FAERS Safety Report 6721892-7 (Version None)
Quarter: 2010Q2

REPORT INFORMATION
  Report Type: 
  Country: None (occurrence: None)
  Receive Date: 20100512
  Receipt Date: 20100503
  Transmission Date: 20101027
  Serious: Yes (Hospitalization)
  Sender: FDA-Public Use
  Company Number: PHHY2010US24687

PATIENT
  Sex: Female
  Weight: 48.526 kg

DRUGS (1)
  1. EXJADE [Suspect]
     Dosage: 1500 MG, QD
     Route: 048

REACTIONS (9)
  - ABDOMINAL WALL OPERATION [None]
  - BLOOD POTASSIUM INCREASED [None]
  - CALCINOSIS [None]
  - DIARRHOEA [None]
  - DRY SKIN [None]
  - DYSPHAGIA [None]
  - HEADACHE [None]
  - MUSCLE TIGHTNESS [None]
  - MYALGIA [None]
